FAERS Safety Report 13177210 (Version 2)
Quarter: 2017Q3

REPORT INFORMATION
  Report Type: Report from Study
  Country: US (occurrence: US)
  Receive Date: 20170201
  Receipt Date: 20170731
  Transmission Date: 20171127
  Serious: No
  Sender: FDA-Public Use
  Company Number: US-EXELIXIS-CABO-16007390

PATIENT
  Sex: Male

DRUGS (22)
  1. CABOMETYX [Suspect]
     Active Substance: CABOZANTINIB S-MALATE
     Indication: RENAL CANCER
     Dosage: 60 MG, QD
     Route: 048
     Dates: start: 20160621, end: 20160718
  2. POTASSIUM [Concomitant]
     Active Substance: POTASSIUM
  3. VITAMIN B [Concomitant]
     Active Substance: VITAMIN B
  4. MIRALAX [Concomitant]
     Active Substance: POLYETHYLENE GLYCOL 3350
  5. MAGNESIUM [Concomitant]
     Active Substance: MAGNESIUM
  6. NOVOLOG [Concomitant]
     Active Substance: INSULIN ASPART
  7. CABOMETYX [Suspect]
     Active Substance: CABOZANTINIB S-MALATE
     Dosage: 40 MG, QD
     Route: 048
     Dates: start: 20160929
  8. CALCITRIOL. [Concomitant]
     Active Substance: CALCITRIOL
  9. CITRATE [Concomitant]
     Active Substance: CITRIC ACID MONOHYDRATE
  10. GLUTAMINE [Concomitant]
     Active Substance: GLUTAMINE
  11. FINASTERIDE. [Concomitant]
     Active Substance: FINASTERIDE
  12. LEVEMIR [Concomitant]
     Active Substance: INSULIN DETEMIR
  13. CHLORTHALIDONE. [Concomitant]
     Active Substance: CHLORTHALIDONE
  14. VITAMIN D3 [Concomitant]
     Active Substance: CHOLECALCIFEROL
  15. FLOMAX [Concomitant]
     Active Substance: TAMSULOSIN HYDROCHLORIDE
  16. FERROUS SULFATE. [Concomitant]
     Active Substance: FERROUS SULFATE
  17. LEVOTHYROXINE. [Concomitant]
     Active Substance: LEVOTHYROXINE
  18. CARNITINE [Concomitant]
     Active Substance: CARNITINE
  19. NIFEDIPINE. [Concomitant]
     Active Substance: NIFEDIPINE
  20. ALLOPURINOL. [Concomitant]
     Active Substance: ALLOPURINOL
  21. COLACE [Concomitant]
     Active Substance: DOCUSATE SODIUM
  22. SENOKOT [Concomitant]
     Active Substance: SENNOSIDES

REACTIONS (6)
  - Skin disorder [Unknown]
  - Glossodynia [Unknown]
  - Oral pain [Unknown]
  - Blood glucose abnormal [Not Recovered/Not Resolved]
  - Constipation [Unknown]
  - Skin ulcer [Recovering/Resolving]
